FAERS Safety Report 9311096 (Version 1)
Quarter: 2013Q2

REPORT INFORMATION
  Report Type: Spontaneous
  Country: US (occurrence: US)
  Receive Date: 20130528
  Receipt Date: 20130528
  Transmission Date: 20140414
  Serious: No
  Sender: FDA-Public Use
  Company Number: US-PFIZER INC-2013160378

PATIENT
  Age: 80 Year
  Sex: Male

DRUGS (1)
  1. INLYTA [Suspect]
     Dosage: 5 MG, 2X/DAY

REACTIONS (4)
  - Dysphonia [Unknown]
  - Fatigue [Unknown]
  - Hypothyroidism [Unknown]
  - Diarrhoea [Unknown]
